FAERS Safety Report 9272943 (Version 3)
Quarter: 2015Q1

REPORT INFORMATION
  Report Type: Spontaneous
  Country: US (occurrence: US)
  Receive Date: 20130506
  Receipt Date: 20150217
  Transmission Date: 20150721
  Serious: No
  Sender: FDA-Public Use
  Company Number: US-009507513-1305USA001544

PATIENT
  Sex: Male

DRUGS (1)
  1. PROPECIA [Suspect]
     Active Substance: FINASTERIDE
     Indication: ALOPECIA
     Dosage: 1 MG, QD
     Route: 048
     Dates: start: 2002, end: 2009

REACTIONS (11)
  - Anxiety [Not Recovered/Not Resolved]
  - Hormone level abnormal [Unknown]
  - Cognitive disorder [Not Recovered/Not Resolved]
  - Blood testosterone decreased [Unknown]
  - Depression [Not Recovered/Not Resolved]
  - Sexual dysfunction [Not Recovered/Not Resolved]
  - Brain injury [Unknown]
  - Penis injury [Unknown]
  - Erectile dysfunction [Unknown]
  - Loss of libido [Unknown]
  - Semen volume decreased [Unknown]

NARRATIVE: CASE EVENT DATE: 2004
